FAERS Safety Report 12721235 (Version 1)
Quarter: 2016Q3

REPORT INFORMATION
  Report Type: Spontaneous
  Country: US (occurrence: US)
  Receive Date: 20160907
  Receipt Date: 20160907
  Transmission Date: 20161109
  Serious: No
  Sender: FDA-Public Use
  Company Number: None

PATIENT
  Sex: Female

DRUGS (3)
  1. FORTEO [Suspect]
     Active Substance: TERIPARATIDE
     Indication: ARTHROPATHY
  2. FORTEO [Suspect]
     Active Substance: TERIPARATIDE
     Indication: RHINITIS ALLERGIC
  3. FORTEO [Suspect]
     Active Substance: TERIPARATIDE
     Indication: HYPERLIPIDAEMIA

REACTIONS (2)
  - Myalgia [None]
  - Bone pain [None]
